FAERS Safety Report 10928698 (Version 1)
Quarter: 2015Q1

REPORT INFORMATION
  Report Type: Spontaneous
  Country: US (occurrence: None)
  Receive Date: 20150206
  Receipt Date: 20150206
  Transmission Date: 20150721
  Serious: No
  Sender: FDA-Public Use
  Company Number: 1411USA000081

PATIENT
  Age: 9 Year
  Sex: Male
  Weight: 38.1 kg

DRUGS (2)
  1. ZANTAC [Concomitant]
     Active Substance: RANITIDINE HYDROCHLORIDE
  2. GRASTEK [Suspect]
     Active Substance: PHLEUM PRATENSE POLLEN
     Indication: RHINITIS ALLERGIC
     Route: 060

REACTIONS (3)
  - Chest pain [None]
  - Abdominal pain upper [None]
  - Headache [None]
